FAERS Safety Report 21227264 (Version 1)
Quarter: 2022Q3

REPORT INFORMATION
  Report Type: Spontaneous
  Country: US (occurrence: None)
  Receive Date: 20220817
  Receipt Date: 20220817
  Transmission Date: 20221026
  Serious: Yes (Other)
  Sender: FDA-Public Use
  Company Number: None

PATIENT
  Age: 48 Year
  Sex: Female
  Weight: 81 kg

DRUGS (1)
  1. OSPHENA [Suspect]
     Active Substance: OSPEMIFENE
     Indication: Dyspareunia
     Dosage: FREQUENCY : DAILY;?
     Route: 048
     Dates: end: 20220816

REACTIONS (1)
  - Ovarian granulosa cell tumour [None]

NARRATIVE: CASE EVENT DATE: 20220524
